FAERS Safety Report 9640697 (Version 1)
Quarter: 2013Q4

REPORT INFORMATION
  Report Type: Report from Study
  Country: US (occurrence: US)
  Receive Date: 20131023
  Receipt Date: 20131023
  Transmission Date: 20140711
  Serious: No
  Sender: FDA-Public Use
  Company Number: US-ABBVIE-13P-163-1147242-00

PATIENT
  Age: 35 Year
  Sex: Female

DRUGS (2)
  1. LUPRON DEPOT [Suspect]
     Indication: OFF LABEL USE
     Dates: start: 20130830, end: 20130909
  2. LUPRON DEPOT [Suspect]
     Indication: IN VITRO FERTILISATION

REACTIONS (3)
  - Hormone level abnormal [Not Recovered/Not Resolved]
  - Off label use [Unknown]
  - Menstruation delayed [Unknown]
